FAERS Safety Report 15007157 (Version 2)
Quarter: 2018Q2

REPORT INFORMATION
  Report Type: Spontaneous
  Country: FR (occurrence: FR)
  Receive Date: 20180613
  Receipt Date: 20180620
  Transmission Date: 20180711
  Serious: Yes (Hospitalization)
  Sender: FDA-Public Use
  Company Number: FR-TEVA-2018-FR-906072

PATIENT
  Age: 80 Year
  Sex: Female
  Weight: 86 kg

DRUGS (10)
  1. PARACETAMOL [Concomitant]
     Active Substance: ACETAMINOPHEN
  2. CORDARONE [Concomitant]
     Active Substance: AMIODARONE HYDROCHLORIDE
  3. AMOXICILLIN. [Suspect]
     Active Substance: AMOXICILLIN
     Indication: ANTIBIOTIC THERAPY
     Dosage: 18 GRAM DAILY;
     Route: 041
     Dates: start: 20171226, end: 20171231
  4. LOVENOX [Concomitant]
     Active Substance: ENOXAPARIN SODIUM
  5. MUCOMYST [Concomitant]
     Active Substance: ACETYLCYSTEINE
  6. LEVOFLOXACINE [Concomitant]
     Active Substance: LEVOFLOXACIN
  7. TIBERAL 1 G, SOLUTION INJECTABLE POUR PERFUSION [Concomitant]
  8. KEPPRA [Concomitant]
     Active Substance: LEVETIRACETAM
  9. CLAFORAN 2 G, POUDRE POUR SOLUTION INJECTABLE (I.M./I.V.) [Concomitant]
  10. LINEZOLIDE [Concomitant]
     Active Substance: LINEZOLID

REACTIONS (1)
  - Crystal nephropathy [Recovering/Resolving]

NARRATIVE: CASE EVENT DATE: 20180113
